FAERS Safety Report 20941423 (Version 3)
Quarter: 2022Q3

REPORT INFORMATION
  Report Type: Report from Study
  Country: US (occurrence: US)
  Receive Date: 20220610
  Receipt Date: 20220705
  Transmission Date: 20221027
  Serious: Yes (Hospitalization, Other)
  Sender: FDA-Public Use
  Company Number: US-ABBVIE-22K-163-4426045-00

PATIENT
  Sex: Female

DRUGS (5)
  1. RINVOQ [Suspect]
     Active Substance: UPADACITINIB
     Indication: Rheumatoid arthritis
     Route: 048
     Dates: start: 2019, end: 2022
  2. RINVOQ [Suspect]
     Active Substance: UPADACITINIB
     Route: 048
     Dates: start: 202206
  3. PFIZER-BIONTECH COVID-19 VACCINE [Concomitant]
     Active Substance: TOZINAMERAN
     Indication: COVID-19 immunisation
     Dosage: 1ST DOSE
     Route: 030
     Dates: start: 20210128, end: 20210128
  4. PFIZER-BIONTECH COVID-19 VACCINE [Concomitant]
     Active Substance: TOZINAMERAN
     Dosage: 2ND DOSE
     Route: 030
     Dates: start: 20210220, end: 20210220
  5. MODERNA COVID-19 VACCINE [Concomitant]
     Active Substance: ELASOMERAN
     Indication: COVID-19 immunisation
     Dosage: BOOSTER DOSE
     Route: 030
     Dates: start: 20210803, end: 20210803

REACTIONS (16)
  - Shoulder arthroplasty [Unknown]
  - COVID-19 [Recovered/Resolved]
  - Hypoxia [Unknown]
  - Pelvic fracture [Unknown]
  - Fall [Unknown]
  - Stomatitis [Unknown]
  - Weight decreased [Unknown]
  - Feeling abnormal [Not Recovered/Not Resolved]
  - Delirium [Not Recovered/Not Resolved]
  - Osteoporosis [Not Recovered/Not Resolved]
  - Arthralgia [Unknown]
  - Joint dislocation [Unknown]
  - Sensation of foreign body [Unknown]
  - Stress [Unknown]
  - Aphasia [Not Recovered/Not Resolved]
  - Rheumatoid arthritis [Unknown]

NARRATIVE: CASE EVENT DATE: 20200101
